FAERS Safety Report 4704573-0 (Version None)
Quarter: 2005Q2

REPORT INFORMATION
  Report Type: 
  Country: None (occurrence: None)
  Receive Date: 20050630
  Receipt Date: 20050614
  Transmission Date: 20051028
  Serious: Yes (Hospitalization, Other)
  Sender: FDA-Public Use
  Company Number: 2005US000763

PATIENT
  Age: 36 Year
  Sex: Female
  Weight: 68 kg

DRUGS (6)
  1. PROGRAF [Suspect]
     Indication: PROPHYLAXIS AGAINST TRANSPLANT REJECTION
     Dates: start: 20011201
  2. CELLCEPT [Suspect]
     Indication: PROPHYLAXIS AGAINST TRANSPLANT REJECTION
  3. PREDNISONE [Suspect]
     Indication: PROPHYLAXIS AGAINST TRANSPLANT REJECTION
  4. PROCRIT [Suspect]
     Indication: NEPHROGENIC ANAEMIA
  5. ARANESP [Suspect]
     Indication: NEPHROGENIC ANAEMIA
     Dosage: WEEKLY
     Dates: start: 20050331
  6. CYCLOSPORINE [Concomitant]

REACTIONS (7)
  - APLASIA PURE RED CELL [None]
  - DRUG INEFFECTIVE [None]
  - HAEMATOCRIT DECREASED [None]
  - HAEMOGLOBIN DECREASED [None]
  - RETICULOCYTE COUNT INCREASED [None]
  - THERAPEUTIC RESPONSE DECREASED [None]
  - UTERINE CERVICAL SQUAMOUS METAPLASIA [None]
